FAERS Safety Report 25979170 (Version 1)
Quarter: 2025Q4

REPORT INFORMATION
  Report Type: Spontaneous
  Country: US (occurrence: None)
  Receive Date: 20251030
  Receipt Date: 20251030
  Transmission Date: 20260117
  Serious: Yes (Death)
  Sender: FDA-CTU
  Company Number: None

PATIENT
  Age: 80 Year
  Sex: Male
  Weight: 73 kg

DRUGS (2)
  1. APIXABAN [Suspect]
     Active Substance: APIXABAN
     Indication: Cerebrovascular accident prophylaxis
     Dosage: FREQUENCY : TWICE A DAY;?
     Route: 048
     Dates: start: 20231101, end: 20250311
  2. ASPIRIN [Suspect]
     Active Substance: ASPIRIN
     Indication: Cerebrovascular accident prophylaxis
     Dosage: FREQUENCY : DAILY;?
     Route: 048
     Dates: start: 20201022, end: 20250311

REACTIONS (8)
  - Blood loss anaemia [None]
  - Gastrointestinal haemorrhage [None]
  - Heart failure with reduced ejection fraction [None]
  - Acute kidney injury [None]
  - Red blood cell transfusion [None]
  - Gastrointestinal angiodysplasia [None]
  - Hypervolaemia [None]
  - Loss of consciousness [None]

NARRATIVE: CASE EVENT DATE: 20250311
